FAERS Safety Report 23561461 (Version 3)
Quarter: 2024Q1

REPORT INFORMATION
  Report Type: Spontaneous
  Country: PL (occurrence: PL)
  Receive Date: 20240225
  Receipt Date: 20240321
  Transmission Date: 20240410
  Serious: Yes (Other)
  Sender: FDA-Public Use
  Company Number: PL-JNJFOC-20240259362

PATIENT
  Age: 76 Year
  Sex: Male
  Weight: 80 kg

DRUGS (1)
  1. ERLEADA [Suspect]
     Active Substance: APALUTAMIDE
     Indication: Prostate cancer
     Route: 048
     Dates: start: 20230627

REACTIONS (8)
  - Deafness unilateral [Not Recovered/Not Resolved]
  - Bladder catheterisation [Unknown]
  - Rib fracture [Unknown]
  - Rheumatic disorder [Recovered/Resolved]
  - Hepatic pain [Recovered/Resolved]
  - Exostosis [Unknown]
  - Hyperhidrosis [Not Recovered/Not Resolved]
  - Diverticulum intestinal [Unknown]
